FAERS Safety Report 15447997 (Version 2)
Quarter: 2018Q4

REPORT INFORMATION
  Report Type: Spontaneous
  Country: CA (occurrence: CA)
  Receive Date: 20180928
  Receipt Date: 20181116
  Transmission Date: 20190204
  Serious: Yes (Other)
  Sender: FDA-Public Use
  Company Number: CA-TEVA-2018-CA-957906

PATIENT
  Sex: Male

DRUGS (1)
  1. TEVA SALBUTAMOL [Suspect]
     Active Substance: ALBUTEROL
     Dosage: STRENGTH: 100 MCG/DOSE
     Route: 065

REACTIONS (1)
  - Burn oral cavity [Unknown]
